FAERS Safety Report 21798924 (Version 1)
Quarter: 2022Q4

REPORT INFORMATION
  Report Type: Spontaneous
  Country: US (occurrence: US)
  Receive Date: 20221230
  Receipt Date: 20221230
  Transmission Date: 20230112
  Serious: Yes (Death)
  Sender: FDA-Public Use
  Company Number: US-002147023-NVSC2022US301009

PATIENT
  Age: 3 Year
  Sex: Female

DRUGS (1)
  1. HYCAMTIN [Suspect]
     Active Substance: TOPOTECAN HYDROCHLORIDE
     Indication: Adrenal gland cancer
     Dosage: 0.25 MG, BID
     Route: 048
     Dates: start: 202212

REACTIONS (1)
  - Death [Fatal]

NARRATIVE: CASE EVENT DATE: 20221222
